FAERS Safety Report 4558844-1 (Version None)
Quarter: 2005Q1

REPORT INFORMATION
  Report Type: 
  Country: None (occurrence: None)
  Receive Date: 20050121
  Receipt Date: 20041206
  Transmission Date: 20050727
  Serious: Yes (Hospitalization)
  Sender: FDA-Public Use
  Company Number: US-AMGEN-KDL103338

PATIENT
  Sex: Female

DRUGS (19)
  1. ENBREL [Suspect]
     Indication: RHEUMATOID ARTHRITIS
     Route: 058
     Dates: start: 19990301, end: 20040414
  2. METHOTREXATE [Concomitant]
  3. CORTICOSTEROID NOS [Concomitant]
  4. CATAPRES [Concomitant]
     Route: 062
  5. LEVOTHYROXINE [Concomitant]
  6. PROTONIX [Concomitant]
  7. POTASSIUM [Concomitant]
  8. PREDNISONE [Concomitant]
  9. CELEBREX [Concomitant]
     Route: 048
  10. XANAX [Concomitant]
  11. CLONIDINE [Concomitant]
  12. LOMOTIL [Concomitant]
  13. ALUMINUM HYDROXIDE AND MAGNESIUM TRISILICATE [Concomitant]
  14. MILK OF MAGNESIA [Concomitant]
  15. INSULIN [Concomitant]
  16. DARVON [Concomitant]
  17. SIMETHICONE [Concomitant]
  18. AMBIEN [Concomitant]
  19. TUSSIONEX [Concomitant]

REACTIONS (14)
  - BLOOD GLUCOSE ABNORMAL [None]
  - CANDIDIASIS [None]
  - CHOLECYSTITIS [None]
  - CHOLELITHIASIS [None]
  - CLOSTRIDIUM COLITIS [None]
  - ENCEPHALOPATHY [None]
  - HEPATIC ENZYME INCREASED [None]
  - HYPOKALAEMIA [None]
  - HYPOMAGNESAEMIA [None]
  - HYPONATRAEMIA [None]
  - HYPOTENSION [None]
  - LEUKOPENIA [None]
  - PNEUMONIA [None]
  - RESPIRATORY MONILIASIS [None]
